FAERS Safety Report 8229167-4 (Version None)
Quarter: 2012Q1

REPORT INFORMATION
  Report Type: 
  Country: None (occurrence: None)
  Receive Date: 20120322
  Receipt Date: 20120314
  Transmission Date: 20120608
  Serious: Yes (Other)
  Sender: FDA-Public Use
  Company Number: CA-JNJFOC-20120307707

PATIENT
  Sex: Female
  Weight: 87.8 kg

DRUGS (4)
  1. BENADRYL [Concomitant]
     Indication: PREMEDICATION
     Route: 042
  2. REMICADE [Suspect]
     Indication: CROHN'S DISEASE
     Route: 042
     Dates: start: 20111114, end: 20111114
  3. REMICADE [Suspect]
     Route: 042
     Dates: start: 20111011
  4. HYDROCORTISONE [Concomitant]
     Indication: PREMEDICATION
     Route: 042

REACTIONS (6)
  - FLUSHING [None]
  - CHEST DISCOMFORT [None]
  - FEELING HOT [None]
  - INFUSION RELATED REACTION [None]
  - THROAT TIGHTNESS [None]
  - CYANOSIS [None]
